FAERS Safety Report 8586499-8 (Version None)
Quarter: 2012Q3

REPORT INFORMATION
  Report Type: 
  Country: None (occurrence: None)
  Receive Date: 20120810
  Receipt Date: 20120802
  Transmission Date: 20120928
  Serious: Yes (Hospitalization, Other)
  Sender: FDA-Public Use
  Company Number: RU-ROCHE-1075628

PATIENT
  Sex: Female
  Weight: 20 kg

DRUGS (5)
  1. ISONIAZID [Concomitant]
  2. ACTEMRA [Suspect]
     Indication: JUVENILE ARTHRITIS
     Dosage: TOTAL MONTHLY DOSE:160 MG
     Route: 042
     Dates: start: 20110114
  3. CELLCEPT [Concomitant]
     Route: 048
  4. ETHAMBUTOL HYDROCHLORIDE [Concomitant]
  5. METHOTREXATE [Concomitant]
     Route: 048

REACTIONS (6)
  - RED BLOOD CELL SEDIMENTATION RATE INCREASED [None]
  - ULTRASOUND KIDNEY ABNORMAL [None]
  - NEPHROPTOSIS [None]
  - TUBERCULOSIS [None]
  - PANCREATIC DISORDER [None]
  - BILIARY DYSKINESIA [None]
